FAERS Safety Report 8794772 (Version 1)
Quarter: 2012Q4

REPORT INFORMATION
  Report Type: 
  Country: BR (occurrence: BR)
  Receive Date: 20120917
  Receipt Date: 20120917
  Transmission Date: 20130627
  Serious: Yes (Hospitalization, Other)
  Sender: FDA-Public Use
  Company Number: PHHY2012BR080504

PATIENT
  Age: 69 Year
  Sex: Female
  Weight: 50 kg

DRUGS (4)
  1. FORASEQ [Suspect]
     Indication: FATIGUE
     Dosage: 1 DF, BID (1 inhalation of each treatment, 2 times a day)
  2. FORASEQ [Suspect]
     Indication: HYPERSENSITIVITY
     Dosage: 1 DF, (1 capsule of each treatment)
     Dates: start: 20120913
  3. FORASEQ [Suspect]
     Indication: DYSPNOEA
  4. ARIMIDEX [Concomitant]
     Indication: BREAST CANCER
     Dosage: 1 DF, (1 tablet daily)
     Route: 048
     Dates: start: 201205

REACTIONS (3)
  - Breast cancer [Recovered/Resolved]
  - Expired drug administered [Unknown]
  - Fatigue [Not Recovered/Not Resolved]
